FAERS Safety Report 20392444 (Version 1)
Quarter: 2022Q1

REPORT INFORMATION
  Report Type: Report from Study
  Country: DE (occurrence: DE)
  Receive Date: 20220128
  Receipt Date: 20220128
  Transmission Date: 20220423
  Serious: Yes (Hospitalization)
  Sender: FDA-Public Use
  Company Number: DE-TAKEDA-DE201818589

PATIENT
  Age: 56 Year
  Sex: Male
  Weight: 74 kg

DRUGS (19)
  1. TEDUGLUTIDE [Suspect]
     Active Substance: TEDUGLUTIDE
     Indication: Short-bowel syndrome
     Dosage: 0.03 MG/KG, 1X/DAY:QD
     Route: 065
     Dates: start: 20171201
  2. TEDUGLUTIDE [Suspect]
     Active Substance: TEDUGLUTIDE
     Indication: Short-bowel syndrome
     Dosage: 0.03 MG/KG, 1X/DAY:QD
     Route: 065
     Dates: start: 20171201
  3. TEDUGLUTIDE [Suspect]
     Active Substance: TEDUGLUTIDE
     Indication: Short-bowel syndrome
     Dosage: 0.03 MG/KG, 1X/DAY:QD
     Route: 065
     Dates: start: 20171201
  4. TEDUGLUTIDE [Suspect]
     Active Substance: TEDUGLUTIDE
     Indication: Short-bowel syndrome
     Dosage: 0.03 MG/KG, 1X/DAY:QD
     Route: 065
     Dates: start: 20171201
  5. TEDUGLUTIDE [Suspect]
     Active Substance: TEDUGLUTIDE
     Dosage: 0.03 MG/KG, 1X/DAY:QD
     Route: 065
     Dates: start: 20170511, end: 201711
  6. TEDUGLUTIDE [Suspect]
     Active Substance: TEDUGLUTIDE
     Dosage: 0.03 MG/KG, 1X/DAY:QD
     Route: 065
     Dates: start: 20170511, end: 201711
  7. TEDUGLUTIDE [Suspect]
     Active Substance: TEDUGLUTIDE
     Dosage: 0.03 MG/KG, 1X/DAY:QD
     Route: 065
     Dates: start: 20170511, end: 201711
  8. TEDUGLUTIDE [Suspect]
     Active Substance: TEDUGLUTIDE
     Dosage: 0.03 MG/KG, 1X/DAY:QD
     Route: 065
     Dates: start: 20170511, end: 201711
  9. TEDUGLUTIDE [Suspect]
     Active Substance: TEDUGLUTIDE
     Dosage: 0.03 MG/KG, 1X/DAY:QD
     Route: 065
     Dates: start: 20171201, end: 201804
  10. TEDUGLUTIDE [Suspect]
     Active Substance: TEDUGLUTIDE
     Dosage: 0.03 MG/KG, 1X/DAY:QD
     Route: 065
     Dates: start: 20171201, end: 201804
  11. TEDUGLUTIDE [Suspect]
     Active Substance: TEDUGLUTIDE
     Dosage: 0.03 MG/KG, 1X/DAY:QD
     Route: 065
     Dates: start: 20171201, end: 201804
  12. TEDUGLUTIDE [Suspect]
     Active Substance: TEDUGLUTIDE
     Dosage: 0.03 MG/KG, 1X/DAY:QD
     Route: 065
     Dates: start: 20171201, end: 201804
  13. UNSPECIFIED INGREDIENT [Concomitant]
     Active Substance: UNSPECIFIED INGREDIENT
     Indication: Hyperphosphataemia
  14. ALFACALCIDOL [Concomitant]
     Active Substance: ALFACALCIDOL
     Indication: Hypocalcaemia
  15. SODIUM BICARBONATE [Concomitant]
     Active Substance: SODIUM BICARBONATE
     Indication: Blood alkalinisation therapy
  16. FALITHROM [Concomitant]
     Active Substance: PHENPROCOUMON
     Dosage: 3 MILLIGRAM
     Route: 048
     Dates: start: 201806
  17. LOPERAMIDE [Concomitant]
     Active Substance: LOPERAMIDE
     Dosage: 2 MILLIGRAM
     Route: 048
     Dates: start: 201806
  18. MOXIFLOXACIN [Concomitant]
     Active Substance: MOXIFLOXACIN
     Dosage: 400 MILLIGRAM
     Route: 048
     Dates: start: 20180115, end: 20180123
  19. CALCITRIOL [Concomitant]
     Active Substance: CALCITRIOL
     Dosage: 0.50 MICROGRAM
     Route: 048
     Dates: start: 201801, end: 201812

REACTIONS (1)
  - Gastrointestinal infection [Unknown]

NARRATIVE: CASE EVENT DATE: 20180101
